FAERS Safety Report 8779334 (Version 1)
Quarter: 2012Q4

REPORT INFORMATION
  Report Type: 
  Country: US (occurrence: US)
  Receive Date: 20120912
  Receipt Date: 20120912
  Transmission Date: 20130627
  Serious: Yes (Hospitalization)
  Sender: FDA-Public Use
  Company Number: US-BAYER-2012-094109

PATIENT
  Age: 35 Year
  Sex: Female
  Weight: 63.49 kg

DRUGS (11)
  1. YASMIN [Suspect]
  2. OCELLA [Suspect]
  3. FLUCONAZOLE [Concomitant]
     Dosage: 150 mg, UNK
     Route: 048
     Dates: start: 20100209, end: 20100621
  4. SERTRALINE [Concomitant]
     Indication: DEPRESSION
     Dosage: 100 mg, UNK
     Route: 048
     Dates: start: 20100602
  5. SERTRALINE [Concomitant]
     Indication: ANXIETY
  6. SERTRALINE [Concomitant]
     Indication: PANIC ATTACK
  7. METRONIDAZOLE [Concomitant]
     Dosage: 500 mg, UNK
     Route: 048
     Dates: start: 20100602
  8. IBUPROFEN [Concomitant]
     Dosage: 800 mg, UNK
     Route: 048
     Dates: start: 20100707
  9. IBUPROFEN [Concomitant]
     Dosage: 600 mg, UNK
     Route: 048
  10. PERCOCET [Concomitant]
     Dosage: 5 mg, UNK
     Route: 048
     Dates: start: 20100707
  11. OXYCODONE/APAP [Concomitant]
     Dosage: 5-325 mg
     Route: 048
     Dates: start: 20100707

REACTIONS (2)
  - Pulmonary embolism [None]
  - Deep vein thrombosis [None]
